FAERS Safety Report 9373977 (Version 1)
Quarter: 2013Q2

REPORT INFORMATION
  Report Type: Spontaneous
  Country: US (occurrence: None)
  Receive Date: 20130627
  Receipt Date: 20130627
  Transmission Date: 20140414
  Serious: Yes (Hospitalization)
  Sender: FDA-Public Use
  Company Number: None

PATIENT
  Age: 60 Year
  Sex: Male
  Weight: 140.8 kg

DRUGS (1)
  1. FLUCONAZOLE [Suspect]
     Indication: OROPHARYNGEAL CANDIDIASIS
     Dosage: MG PO
     Route: 048
     Dates: start: 20130507, end: 20130514

REACTIONS (5)
  - Skin exfoliation [None]
  - Blister [None]
  - Skin exfoliation [None]
  - Rash [None]
  - Stevens-Johnson syndrome [None]
